FAERS Safety Report 7104316-X (Version None)
Quarter: 2010Q4

REPORT INFORMATION
  Report Type: 
  Country: None (occurrence: None)
  Receive Date: 20101115
  Receipt Date: 20100623
  Transmission Date: 20110411
  Serious: No
  Sender: FDA-Public Use
  Company Number: US-ALLERGAN-1008229US

PATIENT
  Age: 62 Year
  Sex: Male

DRUGS (2)
  1. BOTOX COSMETIC [Suspect]
     Indication: SKIN WRINKLING
     Dosage: 170 UNITS, SINGLE
     Dates: start: 20100525, end: 20100525
  2. COUMADIN [Concomitant]

REACTIONS (1)
  - DYSGEUSIA [None]
